FAERS Safety Report 18058840 (Version 2)
Quarter: 2020Q3

REPORT INFORMATION
  Report Type: Spontaneous
  Country: GB (occurrence: GB)
  Receive Date: 20200723
  Receipt Date: 20200907
  Transmission Date: 20201103
  Serious: Yes (Hospitalization)
  Sender: FDA-Public Use
  Company Number: GB-ASTRAZENECA-2020SE91372

PATIENT
  Age: 55 Year
  Sex: Female

DRUGS (2)
  1. FULVESTRANT. [Suspect]
     Active Substance: FULVESTRANT
     Dosage: DAY 21 CYCLE 3
     Route: 030
     Dates: end: 20200323
  2. IBRANCE [Suspect]
     Active Substance: PALBOCICLIB
     Dosage: DAY 21, CYCLE 3
     Route: 048
     Dates: end: 20200323

REACTIONS (7)
  - Dyspnoea [Unknown]
  - Cough [Unknown]
  - Neutrophil count decreased [Unknown]
  - Platelet count decreased [Unknown]
  - Pyrexia [Unknown]
  - COVID-19 [Recovered/Resolved]
  - Diarrhoea [Unknown]

NARRATIVE: CASE EVENT DATE: 20200316
